FAERS Safety Report 21060220 (Version 1)
Quarter: 2022Q3

REPORT INFORMATION
  Report Type: Spontaneous
  Country: US (occurrence: US)
  Receive Date: 20220708
  Receipt Date: 20220708
  Transmission Date: 20221027
  Serious: No
  Sender: FDA-Public Use
  Company Number: US-SA-SAC20220705000882

PATIENT
  Age: 63 Year
  Sex: Female

DRUGS (1)
  1. DUPIXENT [Suspect]
     Active Substance: DUPILUMAB
     Dosage: DOSE: 300 MG, FREQUENCY: OTHER
     Route: 058
     Dates: start: 202201, end: 202205

REACTIONS (3)
  - Peripheral swelling [Unknown]
  - Erythema [Unknown]
  - Contusion [Unknown]
